FAERS Safety Report 19814774 (Version 1)
Quarter: 2021Q3

REPORT INFORMATION
  Report Type: Spontaneous
  Country: US (occurrence: US)
  Receive Date: 20210909
  Receipt Date: 20210909
  Transmission Date: 20211014
  Serious: No
  Sender: FDA-Public Use
  Company Number: US-BAYER-2021-195367

PATIENT
  Age: 56 Year
  Sex: Male

DRUGS (2)
  1. MIRALAX [Suspect]
     Active Substance: POLYETHYLENE GLYCOL 3350
     Indication: BOWEL PREPARATION
     Dosage: UNK
     Dates: start: 2020
  2. DULCOLAX BALANCE [Concomitant]
     Active Substance: POLYETHYLENE GLYCOL 3350
     Indication: BOWEL PREPARATION
     Dosage: UNK
     Dates: start: 2020

REACTIONS (2)
  - Vomiting [Unknown]
  - Hypotension [Unknown]
